FAERS Safety Report 9768039 (Version 4)
Quarter: 2014Q1

REPORT INFORMATION
  Report Type: Spontaneous
  Country: GB (occurrence: GB)
  Receive Date: 20131217
  Receipt Date: 20140212
  Transmission Date: 20141002
  Serious: Yes (Disabling)
  Sender: FDA-Public Use
  Company Number: GB-PFIZER INC-2013358148

PATIENT
  Age: 27 Year
  Sex: Female
  Weight: 70 kg

DRUGS (5)
  1. EPANUTIN [Suspect]
     Indication: CONVULSION
     Dosage: 100 MG, 1X/DAY
     Route: 048
     Dates: start: 20130730, end: 20131126
  2. PHENYTOIN SODIUM [Suspect]
     Indication: CONVULSION
     Dosage: 300 MG, 1X/DAY
     Route: 048
     Dates: start: 20130730, end: 20131126
  3. PHENYTOIN SODIUM [Suspect]
     Dosage: 100 MG, 1X/DAY
     Route: 048
     Dates: start: 20130730, end: 20131126
  4. CO-CODAMOL [Concomitant]
     Dosage: 8/500. 1-2 EVERY SIX HOURS WHEN REQUIRED.
  5. VITAMIN D3 [Concomitant]
     Dosage: 1000 IU, 1X/DAY

REACTIONS (3)
  - Suspected counterfeit product [Not Recovered/Not Resolved]
  - Drug level below therapeutic [Not Recovered/Not Resolved]
  - Product quality issue [Unknown]
